FAERS Safety Report 9220929 (Version 1)
Quarter: 2013Q2

REPORT INFORMATION
  Report Type: Spontaneous
  Country: FR (occurrence: FR)
  Receive Date: 20130409
  Receipt Date: 20130409
  Transmission Date: 20140414
  Serious: Yes (Hospitalization)
  Sender: FDA-Public Use
  Company Number: FR-GLAXOSMITHKLINE-B0870725A

PATIENT
  Age: 14 Year
  Sex: Female

DRUGS (2)
  1. LAMICTAL [Suspect]
     Indication: PARTIAL SEIZURES
     Route: 048
     Dates: start: 20121119, end: 20130104
  2. KEPPRA [Concomitant]
     Indication: PARTIAL SEIZURES
     Route: 065
     Dates: start: 20121119, end: 20121231

REACTIONS (8)
  - Toxic skin eruption [Recovered/Resolved]
  - Rash generalised [Recovered/Resolved]
  - Oral disorder [Recovered/Resolved]
  - Oedema peripheral [Recovered/Resolved]
  - Face oedema [Recovered/Resolved]
  - Blister [Recovered/Resolved]
  - Lip oedema [Recovered/Resolved]
  - Incorrect dose administered [Unknown]
